FAERS Safety Report 4665464-7 (Version None)
Quarter: 2005Q2

REPORT INFORMATION
  Report Type: 
  Country: None (occurrence: None)
  Receive Date: 20050518
  Receipt Date: 20520505
  Transmission Date: 20051028
  Serious: Yes (Other)
  Sender: FDA-Public Use
  Company Number: 2005071003

PATIENT

DRUGS (1)
  1. LISTERINE CITRUS FRESH MOUNTAIN (BENZOIC ACID, CINEOLE, ETHANOL, THYMO [Suspect]
     Dosage: 1 LITRE ONCE ORAL
     Route: 048
     Dates: start: 20050505, end: 20050505

REACTIONS (1)
  - ALCOHOL POISONING [None]
